FAERS Safety Report 11572325 (Version 1)
Quarter: 2015Q3

REPORT INFORMATION
  Report Type: Spontaneous
  Country: US (occurrence: US)
  Receive Date: 20150916
  Receipt Date: 20150916
  Transmission Date: 20151125
  Serious: No
  Sender: FDA-Public Use
  Company Number: US-ELI_LILLY_AND_COMPANY-US200910002746

PATIENT
  Age: 88 Year
  Sex: Female

DRUGS (2)
  1. FORTEO [Suspect]
     Active Substance: TERIPARATIDE
     Dosage: 20 UG, DAILY (1/D)
  2. PREVACID [Concomitant]
     Active Substance: LANSOPRAZOLE
     Indication: DYSPEPSIA

REACTIONS (7)
  - Hypersensitivity [Unknown]
  - Change of bowel habit [Unknown]
  - Sinusitis [Unknown]
  - Eructation [Unknown]
  - Frequent bowel movements [Unknown]
  - Hypoacusis [Unknown]
  - Flatulence [Unknown]

NARRATIVE: CASE EVENT DATE: 200910
